FAERS Safety Report 18904783 (Version 1)
Quarter: 2021Q1

REPORT INFORMATION
  Report Type: Spontaneous
  Country: US (occurrence: US)
  Receive Date: 20210217
  Receipt Date: 20210217
  Transmission Date: 20210420
  Serious: Yes (Other)
  Sender: FDA-Public Use
  Company Number: US-JNJFOC-20210225049

PATIENT
  Age: 39 Year
  Sex: Female
  Weight: 59.02 kg

DRUGS (1)
  1. XARELTO [Suspect]
     Active Substance: RIVAROXABAN
     Indication: PRODUCT USED FOR UNKNOWN INDICATION
     Route: 048
     Dates: start: 20210107

REACTIONS (2)
  - Incorrect dose administered [Unknown]
  - Haemorrhage [Unknown]

NARRATIVE: CASE EVENT DATE: 202101
